FAERS Safety Report 4917615-4 (Version None)
Quarter: 2006Q1

REPORT INFORMATION
  Report Type: 
  Country: None (occurrence: None)
  Receive Date: 20060221
  Receipt Date: 20060120
  Transmission Date: 20060701
  Serious: Yes (Other)
  Sender: FDA-Public Use
  Company Number: PHNU2006DE00623

PATIENT
  Sex: Female
  Weight: 48 kg

DRUGS (6)
  1. ZOMETA [Suspect]
     Indication: METASTASES TO BONE
     Dosage: UNK, QMO
     Route: 042
     Dates: start: 20030101, end: 20041001
  2. ARIMIDEX [Concomitant]
     Indication: METASTASES TO BONE
     Dosage: 1 MG, QD
     Route: 048
     Dates: start: 20030101, end: 20031001
  3. MEGESTAT [Concomitant]
     Dosage: 160 MG, QD
     Route: 048
     Dates: start: 20031001
  4. RADIOTHERAPY [Concomitant]
     Indication: METASTASES TO BONE
     Dosage: UP TO 30 GY/WEEK
     Route: 061
     Dates: start: 20030509, end: 20030522
  5. RADIOTHERAPY [Concomitant]
     Dosage: UP TO 30 GY/WEEK
     Route: 061
     Dates: start: 20041020, end: 20041103
  6. RADIOTHERAPY [Concomitant]
     Dosage: UP TO 30 GY/WEEK
     Route: 061
     Dates: start: 20051006, end: 20051018

REACTIONS (2)
  - OSTEOMYELITIS [None]
  - OSTEONECROSIS [None]
